FAERS Safety Report 11005463 (Version 1)
Quarter: 2015Q2

REPORT INFORMATION
  Report Type: Spontaneous
  Country: US (occurrence: US)
  Receive Date: 20150409
  Receipt Date: 20150409
  Transmission Date: 20150821
  Serious: No
  Sender: FDA-Public Use
  Company Number: US-ALLERGAN-1502286US

PATIENT
  Sex: Male

DRUGS (8)
  1. LUMIGAN [Suspect]
     Active Substance: BIMATOPROST
     Indication: PRODUCT USED FOR UNKNOWN INDICATION
     Dosage: 2 GTT, QPM
     Route: 047
  2. AZOPT [Concomitant]
     Active Substance: BRINZOLAMIDE
  3. COMBIGAN[R] [Concomitant]
     Active Substance: BRIMONIDINE TARTRATE\TIMOLOL MALEATE
  4. POLYMYXIN B -TRIMETHOPRIM OPHTHA. [Concomitant]
  5. PREDNISOLONE ACETATE, 1.0% [Concomitant]
     Active Substance: PREDNISOLONE ACETATE
  6. ATROPINE [Concomitant]
     Active Substance: ATROPINE
  7. OFLOXACIN, 0.3% [Concomitant]
  8. GATIFLOXACIN. [Concomitant]
     Active Substance: GATIFLOXACIN

REACTIONS (2)
  - Eye irritation [Unknown]
  - Erythema [Unknown]
